FAERS Safety Report 8177041-4 (Version None)
Quarter: 2012Q1

REPORT INFORMATION
  Report Type: 
  Country: None (occurrence: None)
  Receive Date: 20120301
  Receipt Date: 20120228
  Transmission Date: 20120608
  Serious: Yes (Hospitalization, Disabling)
  Sender: FDA-Public Use
  Company Number: US-GLAXOSMITHKLINE-A0834604A

PATIENT
  Age: 55 Year
  Sex: Male
  Weight: 82.3 kg

DRUGS (7)
  1. AVANDIA [Suspect]
     Indication: DIABETES MELLITUS
     Dosage: 2MG TWICE PER DAY
     Route: 048
     Dates: start: 20020101, end: 20090401
  2. LISINOPRIL [Concomitant]
  3. LIPITOR [Concomitant]
  4. METOPROLOL SUCCINATE [Concomitant]
  5. AVANDAMET [Suspect]
     Indication: DIABETES MELLITUS
     Route: 048
     Dates: start: 20020101
  6. GLYBURIDE [Concomitant]
  7. METFORMIN HCL [Concomitant]

REACTIONS (5)
  - ANGINA UNSTABLE [None]
  - CARDIAC DISORDER [None]
  - ACUTE CORONARY SYNDROME [None]
  - MYOCARDIAL INFARCTION [None]
  - CARDIOVASCULAR DISORDER [None]
